FAERS Safety Report 5292405-4 (Version None)
Quarter: 2007Q2

REPORT INFORMATION
  Report Type: 
  Country: None (occurrence: None)
  Receive Date: 20070410
  Receipt Date: 20070404
  Transmission Date: 20071010
  Serious: Yes (Hospitalization)
  Sender: FDA-Public Use
  Company Number: BR-PFIZER INC-2007027117

PATIENT
  Age: 70 Year
  Sex: Female

DRUGS (5)
  1. ZOLOFT [Suspect]
     Indication: NEURALGIA
     Dosage: TEXT:UNKNOWN
     Route: 048
  2. NOVALGINA [Concomitant]
     Route: 048
  3. ALL OTHER THERAPEUTIC PRODUCTS [Concomitant]
  4. TRYPTANOL [Concomitant]
     Route: 048
  5. LEXOTAN [Concomitant]
     Route: 048

REACTIONS (1)
  - SPINAL OPERATION [None]
